FAERS Safety Report 15716294 (Version 2)
Quarter: 2019Q1

REPORT INFORMATION
  Report Type: Spontaneous
  Country: CN (occurrence: CN)
  Receive Date: 20181213
  Receipt Date: 20190228
  Transmission Date: 20190417
  Serious: Yes (Hospitalization, Other)
  Sender: FDA-Public Use
  Company Number: CN-BRISTOL-MYERS SQUIBB COMPANY-BMS-2018-114672

PATIENT
  Age: 67 Year
  Sex: Female

DRUGS (1)
  1. OPDIVO [Suspect]
     Active Substance: NIVOLUMAB
     Indication: LUNG NEOPLASM MALIGNANT
     Dosage: 180 MG, UNK
     Route: 042

REACTIONS (6)
  - Eye disorder [Unknown]
  - Chest discomfort [Unknown]
  - Asthenia [Unknown]
  - Cardiomyopathy [Unknown]
  - Alanine aminotransferase increased [Unknown]
  - Dyspnoea [Unknown]
